FAERS Safety Report 6429541-2 (Version None)
Quarter: 2009Q4

REPORT INFORMATION
  Report Type: 
  Country: None (occurrence: None)
  Receive Date: 20091102
  Receipt Date: 20091015
  Transmission Date: 20100525
  Serious: Yes (Hospitalization, Disabling)
  Sender: FDA-Public Use
  Company Number: 1-20434203

PATIENT
  Sex: Male
  Weight: 56.0646 kg

DRUGS (11)
  1. WARFARIN SODIUM [Suspect]
     Indication: HEART VALVE REPLACEMENT
     Dosage: 5 MG DAILY, ORAL
     Route: 048
  2. CLOPIDOGREL [Suspect]
     Dosage: 75 MG DAILY, ORAL
     Route: 048
  3. FUROSEMIDE [Concomitant]
  4. METOPROLOL [Concomitant]
  5. POTASSIUM CHLORIDE [Concomitant]
  6. CARBAMAZEPINE [Concomitant]
  7. SERTRALINE HCL [Concomitant]
  8. OMEPRAZOLE [Concomitant]
  9. ASPIRIN [Concomitant]
  10. VALPROIC ACID [Suspect]
     Dosage: 250 MG TWICE DAILY, ORAL
     Route: 048
  11. TRAMADOL HCL [Suspect]
     Indication: PAIN
     Dosage: 50 MG EVERY 6 HOURS AS NEEDED, ORAL
     Route: 048

REACTIONS (10)
  - CONTUSION [None]
  - DRUG ABUSE [None]
  - DRUG INTERACTION [None]
  - EPISTAXIS [None]
  - GASTRIC ULCER [None]
  - HAEMOGLOBIN DECREASED [None]
  - INTERNATIONAL NORMALISED RATIO DECREASED [None]
  - INTERNATIONAL NORMALISED RATIO INCREASED [None]
  - SYNCOPE [None]
  - UPPER GASTROINTESTINAL HAEMORRHAGE [None]
